FAERS Safety Report 23879851 (Version 3)
Quarter: 2024Q3

REPORT INFORMATION
  Report Type: Report from Study
  Country: PK (occurrence: PK)
  Receive Date: 20240521
  Receipt Date: 20240906
  Transmission Date: 20241017
  Serious: Yes (Other)
  Sender: AEGERION
  Company Number: PK-AMRYT PHARMACEUTICALS DAC-AEGR007133

PATIENT

DRUGS (3)
  1. METRELEPTIN [Suspect]
     Active Substance: METRELEPTIN
     Indication: Congenital generalised lipodystrophy
     Dosage: UNK
     Route: 058
     Dates: start: 2012
  2. METRELEPTIN [Suspect]
     Active Substance: METRELEPTIN
     Dosage: 2.5 MILLIGRAM, BID
     Route: 058
     Dates: start: 20220809
  3. FOLIC ACID [Concomitant]
     Active Substance: FOLIC ACID
     Indication: Product used for unknown indication

REACTIONS (4)
  - Premature delivery [Unknown]
  - Pre-eclampsia [Unknown]
  - Maternal exposure during pregnancy [Unknown]
  - Live birth [Unknown]

NARRATIVE: CASE EVENT DATE: 20240625
